FAERS Safety Report 7273089-2 (Version None)
Quarter: 2011Q1

REPORT INFORMATION
  Report Type: 
  Country: None (occurrence: None)
  Receive Date: 20110203
  Receipt Date: 20110124
  Transmission Date: 20110831
  Serious: Yes (Other)
  Sender: FDA-Public Use
  Company Number: US-JNJCH-2011002527

PATIENT
  Age: 25 Year
  Sex: Female
  Weight: 127 kg

DRUGS (1)
  1. LISTERINE TOTAL CARE ANTICAVITY MOUTHWASH [Suspect]
     Indication: DENTAL DISORDER PROPHYLAXIS
     Dosage: TEXT:HALF CAPFUL ONCE DAILY
     Route: 048
     Dates: start: 20100501, end: 20100508

REACTIONS (4)
  - PRODUCT QUALITY ISSUE [None]
  - APHASIA [None]
  - STOMATITIS [None]
  - APPLICATION SITE BURN [None]
